FAERS Safety Report 19985055 (Version 1)
Quarter: 2021Q4

REPORT INFORMATION
  Report Type: Spontaneous
  Country: US (occurrence: US)
  Receive Date: 20211021
  Receipt Date: 20211021
  Transmission Date: 20220303
  Serious: No
  Sender: FDA-Public Use
  Company Number: US-ZOGENIX INTERNATIONAL LIMITED, A WHOLLY OWNED SUBSIDIARY OF ZOGENIX, INC.-2021ZX000515

PATIENT

DRUGS (2)
  1. FINTEPLA [Suspect]
     Active Substance: FENFLURAMINE
     Indication: Severe myoclonic epilepsy of infancy
     Dosage: CURRENTLY AT MAX DOSE
     Route: 048
     Dates: start: 2019
  2. VALTOCO [Concomitant]
     Active Substance: DIAZEPAM
     Indication: Seizure
     Route: 065

REACTIONS (2)
  - Heart rate irregular [Not Recovered/Not Resolved]
  - Seizure [Not Recovered/Not Resolved]
